FAERS Safety Report 7235778-5 (Version None)
Quarter: 2011Q1

REPORT INFORMATION
  Report Type: 
  Country: None (occurrence: None)
  Receive Date: 20110120
  Receipt Date: 20110110
  Transmission Date: 20110831
  Serious: Yes (Other)
  Sender: FDA-Public Use
  Company Number: PHHY2011PT02024

PATIENT
  Age: 2 Year

DRUGS (1)
  1. CYCLOSPORINE [Suspect]
     Indication: ERYTHRODERMIC PSORIASIS

REACTIONS (5)
  - SKIN LESION [None]
  - PSORIASIS [None]
  - ANGIOEDEMA [None]
  - URTICARIA [None]
  - IMPETIGO [None]
